FAERS Safety Report 14921033 (Version 1)
Quarter: 2018Q2

REPORT INFORMATION
  Report Type: Spontaneous
  Country: US (occurrence: US)
  Receive Date: 20180521
  Receipt Date: 20180521
  Transmission Date: 20180711
  Serious: Yes (Other)
  Sender: FDA-Public Use
  Company Number: None

PATIENT
  Age: 46 Year
  Sex: Female
  Weight: 109.77 kg

DRUGS (2)
  1. XTAMPZA [Suspect]
     Active Substance: OXYCODONE
     Indication: PSORIATIC ARTHROPATHY
     Route: 048
     Dates: start: 20180109
  2. XTAMPZA [Suspect]
     Active Substance: OXYCODONE
     Indication: PSORIATIC ARTHROPATHY
     Route: 048
     Dates: start: 20180109

REACTIONS (1)
  - Drug ineffective [None]

NARRATIVE: CASE EVENT DATE: 20180120
